FAERS Safety Report 7001674-1 (Version None)
Quarter: 2010Q3

REPORT INFORMATION
  Report Type: 
  Country: None (occurrence: None)
  Receive Date: 20100920
  Receipt Date: 20100910
  Transmission Date: 20110219
  Serious: Yes (Hospitalization)
  Sender: FDA-Public Use
  Company Number: FR-PFIZER INC-2010114536

PATIENT
  Age: 65 Year
  Sex: Female

DRUGS (7)
  1. ALDACTONE [Suspect]
     Dosage: 50 MG, 1X/DAY
     Route: 048
     Dates: end: 20071128
  2. OMEPRAZOLE [Suspect]
     Dosage: UNK
     Route: 048
     Dates: end: 20071128
  3. METFORMIN [Concomitant]
     Dosage: 1000 MG, UNK
  4. HYPERIUM [Concomitant]
  5. BISOPROLOL FUMARATE [Concomitant]
  6. ZOCOR [Concomitant]
  7. DIAMICRON [Concomitant]

REACTIONS (3)
  - CONFUSIONAL STATE [None]
  - HYPONATRAEMIA [None]
  - INAPPROPRIATE ANTIDIURETIC HORMONE SECRETION [None]
